FAERS Safety Report 5940031-3 (Version None)
Quarter: 2008Q4

REPORT INFORMATION
  Report Type: 
  Country: None (occurrence: None)
  Receive Date: 20081104
  Receipt Date: 20081027
  Transmission Date: 20090506
  Serious: Yes (Other)
  Sender: FDA-Public Use
  Company Number: PHEH2008US09665

PATIENT

DRUGS (2)
  1. ZOMETA [Suspect]
  2. XELODA [Suspect]

REACTIONS (2)
  - BLOOD CREATININE INCREASED [None]
  - RENAL PAPILLARY NECROSIS [None]
